FAERS Safety Report 11390525 (Version 1)
Quarter: 2015Q3

REPORT INFORMATION
  Report Type: Spontaneous
  Country: US (occurrence: US)
  Receive Date: 20150818
  Receipt Date: 20150818
  Transmission Date: 20151125
  Serious: No
  Sender: FDA-Public Use
  Company Number: US-ROCHE-1405658

PATIENT
  Sex: Female

DRUGS (11)
  1. PEGASYS [Suspect]
     Active Substance: PEGINTERFERON ALFA-2A
     Indication: CHRONIC HEPATITIS C
     Route: 058
     Dates: start: 20140508
  2. RIBASPHERE [Suspect]
     Active Substance: RIBAVIRIN
     Indication: CHRONIC HEPATITIS C
     Dosage: DIVIDED DOSES 400 AM/600 PM
     Route: 048
     Dates: start: 20140508
  3. CITALOPRAM [Concomitant]
     Active Substance: CITALOPRAM HYDROBROMIDE
  4. OXYBUTYN [Concomitant]
  5. SOVALDI [Suspect]
     Active Substance: SOFOSBUVIR
     Indication: CHRONIC HEPATITIS C
     Route: 065
     Dates: start: 20140508
  6. XANAX [Concomitant]
     Active Substance: ALPRAZOLAM
     Indication: ANXIETY
     Route: 065
  7. MILK THISTLE [Concomitant]
     Active Substance: MILK THISTLE
  8. OMEPRAZOLE. [Concomitant]
     Active Substance: OMEPRAZOLE
  9. FLAXSEED [Concomitant]
     Active Substance: FLAX SEED
  10. ASPIRIN. [Concomitant]
     Active Substance: ASPIRIN
  11. CITRACAL [Concomitant]
     Active Substance: CALCIUM CITRATE

REACTIONS (20)
  - Traumatic haematoma [Unknown]
  - Nausea [Recovered/Resolved]
  - Chills [Unknown]
  - Myalgia [Unknown]
  - Pruritus [Unknown]
  - Dry skin [Unknown]
  - Dry throat [Unknown]
  - Alopecia [Not Recovered/Not Resolved]
  - Pyrexia [Unknown]
  - Dry eye [Unknown]
  - Fatigue [Not Recovered/Not Resolved]
  - Rash [Unknown]
  - Contusion [Not Recovered/Not Resolved]
  - Dyspnoea [Unknown]
  - Influenza like illness [Not Recovered/Not Resolved]
  - Nasal ulcer [Not Recovered/Not Resolved]
  - Arthralgia [Unknown]
  - Tremor [Unknown]
  - Anxiety [Unknown]
  - Feeling jittery [Unknown]
